FAERS Safety Report 4715178-X (Version None)
Quarter: 2005Q3

REPORT INFORMATION
  Report Type: 
  Country: None (occurrence: None)
  Receive Date: 20050715
  Receipt Date: 20050525
  Transmission Date: 20060218
  Serious: Yes (Death)
  Sender: FDA-Public Use
  Company Number: DE-MERCK-0505DEU00208

PATIENT
  Age: 68 Year
  Sex: Male

DRUGS (2)
  1. CASPOFUNGIN ACETATE [Suspect]
     Indication: CANDIDIASIS
     Route: 042
  2. ANTIMICROBIAL (UNSPECIFIED) [Concomitant]
     Route: 065

REACTIONS (2)
  - CONDITION AGGRAVATED [None]
  - PNEUMONIA [None]
